FAERS Safety Report 8246146-1 (Version None)
Quarter: 2012Q1

REPORT INFORMATION
  Report Type: 
  Country: None (occurrence: None)
  Receive Date: 20120330
  Receipt Date: 20120327
  Transmission Date: 20120608
  Serious: Yes (Death)
  Sender: FDA-Public Use
  Company Number: PHHY2012SG021623

PATIENT
  Sex: Female

DRUGS (3)
  1. GLEEVEC [Suspect]
     Indication: CHRONIC MYELOID LEUKAEMIA
     Dosage: 800 MG, DAILY
     Route: 048
     Dates: start: 20100730
  2. BACTRIM [Concomitant]
  3. ACYCLOVIR [Concomitant]

REACTIONS (3)
  - CHRONIC MYELOID LEUKAEMIA [None]
  - ACUTE LYMPHOCYTIC LEUKAEMIA [None]
  - NEOPLASM MALIGNANT [None]
